FAERS Safety Report 5575239-2 (Version None)
Quarter: 2007Q4

REPORT INFORMATION
  Report Type: 
  Country: None (occurrence: None)
  Receive Date: 20071221
  Receipt Date: 20071212
  Transmission Date: 20080405
  Serious: Yes (Other)
  Sender: FDA-Public Use
  Company Number: US-JNJFOC-2007002478

PATIENT
  Age: 75 Year
  Sex: Male

DRUGS (10)
  1. DACOGEN                     (DECITABIN) LYOPHILIZED [Suspect]
     Indication: MYELODYSPLASTIC SYNDROME
     Dosage: CYCLE 1; CYCLE 2; CYCLE 3; 40 MG, INTRAVENOUS
     Route: 042
     Dates: start: 20071008, end: 20071012
  2. DACOGEN                     (DECITABIN) LYOPHILIZED [Suspect]
     Indication: MYELODYSPLASTIC SYNDROME
     Dosage: CYCLE 1; CYCLE 2; CYCLE 3; 40 MG, INTRAVENOUS
     Route: 042
     Dates: start: 20071112, end: 20071116
  3. DACOGEN                     (DECITABIN) LYOPHILIZED [Suspect]
     Indication: MYELODYSPLASTIC SYNDROME
     Dosage: CYCLE 1; CYCLE 2; CYCLE 3; 40 MG, INTRAVENOUS
     Route: 042
     Dates: start: 20070625
  4. DACOGEN                     (DECITABIN) LYOPHILIZED [Suspect]
     Indication: MYELODYSPLASTIC SYNDROME
     Dosage: CYCLE 1; CYCLE 2; CYCLE 3; 40 MG, INTRAVENOUS
     Route: 042
     Dates: start: 20070806
  5. DACOGEN                     (DECITABIN) LYOPHILIZED [Suspect]
     Indication: MYELODYSPLASTIC SYNDROME
     Dosage: CYCLE 1; CYCLE 2; CYCLE 3; 40 MG, INTRAVENOUS
     Route: 042
     Dates: start: 20070911
  6. ETHAMBUTOL                (ETHAMBUTOL) UNSPECIFIED [Suspect]
     Indication: DRUG USE FOR UNKNOWN INDICATION
  7. ACYCLOVIR [Concomitant]
  8. INH [Suspect]
     Indication: DRUG USE FOR UNKNOWN INDICATION
  9. B6             (PYRIDOXINE HYDROCHLORIDE) UNSPECIFIED [Concomitant]
  10. UROXATRAL                      (ALFUZOSIN HYDROCHLORIDE) UNSPECIFIED [Concomitant]

REACTIONS (1)
  - NEUROPATHY PERIPHERAL [None]
